FAERS Safety Report 5927465-8 (Version None)
Quarter: 2008Q4

REPORT INFORMATION
  Report Type: 
  Country: None (occurrence: None)
  Receive Date: 20081021
  Receipt Date: 20081021
  Transmission Date: 20090506
  Serious: Yes (Other)
  Sender: FDA-Public Use
  Company Number: None

PATIENT
  Age: 26 Year
  Sex: Female
  Weight: 81.6475 kg

DRUGS (2)
  1. AMBIEN [Suspect]
     Indication: INSOMNIA
     Dosage: QHS PO  1 MONTH -MY DAD-  4 DAYS - ME-
     Route: 048
  2. AMBIEN [Suspect]
     Indication: INSOMNIA
     Dosage: QHS PO  1 MONTH -MY DAD-  4 DAYS - ME-
     Route: 048

REACTIONS (5)
  - ABNORMAL BEHAVIOUR [None]
  - HOSTILITY [None]
  - JUDGEMENT IMPAIRED [None]
  - LOSS OF DREAMING [None]
  - THINKING ABNORMAL [None]
